FAERS Safety Report 12358698 (Version 3)
Quarter: 2016Q2

REPORT INFORMATION
  Report Type: Report from Study
  Country: CA (occurrence: CA)
  Receive Date: 20160512
  Receipt Date: 20160621
  Transmission Date: 20160815
  Serious: Yes (Other)
  Sender: FDA-Public Use
  Company Number: CA-UCBSA-2016016935

PATIENT
  Age: 66 Year
  Sex: Female

DRUGS (1)
  1. CERTOLIZUMAB PEGOL ASP [Suspect]
     Active Substance: CERTOLIZUMAB PEGOL
     Indication: ANKYLOSING SPONDYLITIS
     Dosage: 400 MG, EV 2 WEEKS(QOW) X3
     Route: 058
     Dates: start: 20160503, end: 20160531

REACTIONS (10)
  - Vomiting [Unknown]
  - Lacrimation increased [Recovered/Resolved]
  - Swelling [Unknown]
  - Muscle swelling [Recovered/Resolved]
  - Nausea [Unknown]
  - Swollen tongue [Recovered/Resolved]
  - Stress [Recovered/Resolved]
  - Ear swelling [Recovered/Resolved]
  - Myalgia [Unknown]
  - Dizziness postural [Recovered/Resolved]

NARRATIVE: CASE EVENT DATE: 20160503
